FAERS Safety Report 19053782 (Version 1)
Quarter: 2021Q1

REPORT INFORMATION
  Report Type: Spontaneous
  Country: US (occurrence: US)
  Receive Date: 20210324
  Receipt Date: 20210324
  Transmission Date: 20210420
  Serious: No
  Sender: FDA-Public Use
  Company Number: US-ASTRAZENECA-2021A178762

PATIENT
  Sex: Female
  Weight: 79.4 kg

DRUGS (2)
  1. BYDUREON BCISE [Suspect]
     Active Substance: EXENATIDE
     Indication: TYPE 2 DIABETES MELLITUS
     Route: 065
  2. BYDUREON [Suspect]
     Active Substance: EXENATIDE
     Route: 065

REACTIONS (10)
  - Injection site pain [Unknown]
  - Injection site nodule [Unknown]
  - Nausea [Unknown]
  - Wrong technique in device usage process [Unknown]
  - Device issue [Unknown]
  - Malaise [Unknown]
  - Feeling abnormal [Unknown]
  - Visual impairment [Unknown]
  - Eating disorder [Unknown]
  - Headache [Unknown]
